FAERS Safety Report 24555458 (Version 2)
Quarter: 2024Q4

REPORT INFORMATION
  Report Type: Spontaneous
  Country: JP (occurrence: JP)
  Receive Date: 20241028
  Receipt Date: 20241206
  Transmission Date: 20250115
  Serious: Yes (Hospitalization)
  Sender: KOWA PHARM
  Company Number: JP-KOWA-24JP002629AA

PATIENT
  Age: 64 Year
  Sex: Female

DRUGS (2)
  1. LIVALO [Suspect]
     Active Substance: PITAVASTATIN CALCIUM
     Indication: Product used for unknown indication
     Dosage: UNK, UNK
     Route: 048
  2. PAZOPANIB HYDROCHLORIDE [Suspect]
     Active Substance: PAZOPANIB HYDROCHLORIDE
     Indication: Clear cell renal cell carcinoma
     Dosage: UNK, UNK
     Route: 048

REACTIONS (2)
  - Drug interaction [Unknown]
  - Myositis [Unknown]
